FAERS Safety Report 6913050-8 (Version None)
Quarter: 2010Q3

REPORT INFORMATION
  Report Type: 
  Country: None (occurrence: None)
  Receive Date: 20100806
  Receipt Date: 20090616
  Transmission Date: 20110219
  Serious: No
  Sender: FDA-Public Use
  Company Number: US-PFIZER INC-2009189208

PATIENT
  Sex: Female

DRUGS (3)
  1. DILANTIN-125 [Suspect]
     Dosage: UNK
  2. CLINDAMYCIN HCL [Interacting]
     Dosage: UNK
  3. HYDROCODONE [Interacting]
     Dosage: UNK

REACTIONS (3)
  - DRUG INTERACTION [None]
  - DRUG LEVEL DECREASED [None]
  - DRUG LEVEL INCREASED [None]
